FAERS Safety Report 21010347 (Version 1)
Quarter: 2022Q2

REPORT INFORMATION
  Report Type: Report from Study
  Country: US (occurrence: US)
  Receive Date: 20220627
  Receipt Date: 20220627
  Transmission Date: 20220720
  Serious: Yes (Other)
  Sender: FDA-Public Use
  Company Number: US-XERIS PHARMACEUTICALS-2022XER00125

PATIENT
  Sex: Male

DRUGS (5)
  1. KEVEYIS [Suspect]
     Active Substance: DICHLORPHENAMIDE
     Indication: Paralysis
     Dosage: 1/2 TAB (25 MG), 2X/DAY AT THE MOMENT
     Route: 048
     Dates: start: 20220303, end: 202203
  2. KEVEYIS [Suspect]
     Active Substance: DICHLORPHENAMIDE
     Dosage: 1 TABLET (50 MG) IN THE MORNING, 1/2 TABLET (25 MG) IN THE EVENING
     Dates: start: 202203, end: 202203
  3. KEVEYIS [Suspect]
     Active Substance: DICHLORPHENAMIDE
     Dosage: 2 TABLETS (100 MG), 2X/DAY
     Route: 048
     Dates: start: 202203, end: 202203
  4. KEVEYIS [Suspect]
     Active Substance: DICHLORPHENAMIDE
     Dosage: 1 TABLET (50 MG), 2X/DAY AND SLOWLY TAPERING UP
     Route: 048
     Dates: start: 202203, end: 2022
  5. KEVEYIS [Suspect]
     Active Substance: DICHLORPHENAMIDE
     Dosage: 2 TABLETS (100 MG), 2X/DAY
     Route: 048
     Dates: start: 2022

REACTIONS (21)
  - Mast cell activation syndrome [Unknown]
  - Neuralgia [Recovered/Resolved]
  - Vertigo [Recovering/Resolving]
  - Limb discomfort [Recovering/Resolving]
  - Balance disorder [Recovering/Resolving]
  - Dry throat [Not Recovered/Not Resolved]
  - Head discomfort [Unknown]
  - Therapeutic product effect decreased [Unknown]
  - Paranasal sinus discomfort [Unknown]
  - Vibratory sense increased [Unknown]
  - Muscle swelling [Recovering/Resolving]
  - Muscle tightness [Recovering/Resolving]
  - Muscle spasms [Recovering/Resolving]
  - Burning sensation [Recovering/Resolving]
  - Paraesthesia [Recovering/Resolving]
  - Dizziness [Not Recovered/Not Resolved]
  - Fatigue [Recovering/Resolving]
  - Headache [Not Recovered/Not Resolved]
  - Muscle twitching [Not Recovered/Not Resolved]
  - Oropharyngeal pain [Not Recovered/Not Resolved]
  - Paralysis [Unknown]

NARRATIVE: CASE EVENT DATE: 20220101
